FAERS Safety Report 9778421 (Version 1)
Quarter: 2013Q4

REPORT INFORMATION
  Report Type: Spontaneous
  Country: GB (occurrence: GB)
  Receive Date: 20131223
  Receipt Date: 20131223
  Transmission Date: 20140711
  Serious: Yes (Hospitalization)
  Sender: FDA-Public Use
  Company Number: GB-BANPHARM-20131978

PATIENT
  Age: 70 Year
  Sex: Male

DRUGS (11)
  1. LEVOTHYROXINE [Concomitant]
  2. MORPHINE SULFATE [Concomitant]
  3. PARACETAMOL [Concomitant]
  4. IBUPROFEN UNKNOWN PRODUCT [Suspect]
     Indication: HIP ARTHROPLASTY
     Dosage: 400 MG, TID,
  5. AMITRIPTYLINE [Concomitant]
  6. AMLODIPINE [Concomitant]
  7. ASPIRIN [Concomitant]
     Dates: end: 2013
  8. ATORVASTATIN [Concomitant]
  9. BENDROFLUMETHIAZIDE [Concomitant]
  10. ENALAPRIL [Concomitant]
  11. LATANOPROST [Concomitant]

REACTIONS (2)
  - Ulcer [Unknown]
  - Upper gastrointestinal haemorrhage [Recovering/Resolving]
